FAERS Safety Report 22107810 (Version 1)
Quarter: 2023Q1

REPORT INFORMATION
  Report Type: Spontaneous
  Country: GB (occurrence: GB)
  Receive Date: 20230317
  Receipt Date: 20230317
  Transmission Date: 20230418
  Serious: Yes (Disabling, Other)
  Sender: FDA-Public Use
  Company Number: GB-MHRA-MED-202303051559252510-DJMNZ

PATIENT
  Age: 31 Year
  Sex: Male
  Weight: 69 kg

DRUGS (1)
  1. FINASTERIDE [Suspect]
     Active Substance: FINASTERIDE
     Indication: Alopecia
     Dosage: 1 MILLIGRAM EVERY THREE DAYS
     Route: 065
     Dates: start: 20190224, end: 20210410

REACTIONS (9)
  - Anxiety [Recovering/Resolving]
  - Constipation [Recovered/Resolved]
  - Depression [Recovered/Resolved]
  - Dry eye [Recovered/Resolved]
  - Erectile dysfunction [Recovering/Resolving]
  - Food intolerance [Recovering/Resolving]
  - Insomnia [Recovering/Resolving]
  - Loss of libido [Recovering/Resolving]
  - Weight decreased [Recovered/Resolved]
